FAERS Safety Report 14760165 (Version 2)
Quarter: 2018Q3

REPORT INFORMATION
  Report Type: Spontaneous
  Country: US (occurrence: US)
  Receive Date: 20180413
  Receipt Date: 20180813
  Transmission Date: 20181010
  Serious: Yes (Hospitalization)
  Sender: FDA-Public Use
  Company Number: US-VERTEX PHARMACEUTICALS-2018-002495

PATIENT
  Age: 11 Year
  Sex: Male

DRUGS (16)
  1. CAYSTON [Concomitant]
     Active Substance: AZTREONAM
  2. TOBI [Concomitant]
     Active Substance: TOBRAMYCIN
  3. RANITIDINE. [Concomitant]
     Active Substance: RANITIDINE
  4. VITAMIN E                          /00110501/ [Concomitant]
     Active Substance: TOCOPHEROL
  5. COLISTIMETHATE [Concomitant]
     Active Substance: COLISTIMETHATE SODIUM
  6. CREON [Concomitant]
     Active Substance: PANCRELIPASE AMYLASE\PANCRELIPASE LIPASE\PANCRELIPASE PROTEASE
  7. KALYDECO [Suspect]
     Active Substance: IVACAFTOR
     Indication: CYSTIC FIBROSIS
     Dosage: 150 MG, BID
     Route: 048
     Dates: start: 20161123, end: 201801
  8. STERILE WATER [Concomitant]
     Active Substance: WATER
  9. PULMOZYME [Concomitant]
     Active Substance: DORNASE ALFA
  10. VITAMIN D3 [Concomitant]
     Active Substance: CHOLECALCIFEROL
  11. VENTOLIN [Concomitant]
     Active Substance: ALBUTEROL SULFATE
  12. QVAR [Concomitant]
     Active Substance: BECLOMETHASONE DIPROPIONATE
  13. COMPLETE MULTI VIT [Suspect]
     Active Substance: VITAMINS
     Indication: CYSTIC FIBROSIS
     Dosage: 1 DOSAGE FORM, BID
     Route: 048
     Dates: start: 20180123
  14. MEPHYTON [Concomitant]
     Active Substance: PHYTONADIONE
  15. PARI [Concomitant]
  16. SODIUM CHLORIDE. [Concomitant]
     Active Substance: SODIUM CHLORIDE

REACTIONS (1)
  - Infective pulmonary exacerbation of cystic fibrosis [Recovered/Resolved]

NARRATIVE: CASE EVENT DATE: 20180313
